FAERS Safety Report 6624728-8 (Version None)
Quarter: 2010Q1

REPORT INFORMATION
  Report Type: 
  Country: None (occurrence: None)
  Receive Date: 20100310
  Receipt Date: 20100303
  Transmission Date: 20100710
  Serious: Yes (Life-Threatening, Hospitalization)
  Sender: FDA-Public Use
  Company Number: GB-ROCHE-689118

PATIENT
  Age: 48 Year
  Sex: Female

DRUGS (1)
  1. LARIAM [Suspect]
     Indication: MALARIA PROPHYLAXIS
     Dosage: ACTION TAKEN: WITHDRAWN.
     Route: 048
     Dates: start: 20091107, end: 20091219

REACTIONS (7)
  - BRADYCARDIA [None]
  - DISORIENTATION [None]
  - IMPAIRED DRIVING ABILITY [None]
  - NAUSEA [None]
  - PALPITATIONS [None]
  - SLEEP DISORDER [None]
  - SUPRAVENTRICULAR TACHYCARDIA [None]
